FAERS Safety Report 24860485 (Version 2)
Quarter: 2025Q2

REPORT INFORMATION
  Report Type: Report from Study
  Country: CA (occurrence: CA)
  Receive Date: 20250120
  Receipt Date: 20250610
  Transmission Date: 20250717
  Serious: Yes (Hospitalization, Other)
  Sender: SANDOZ
  Company Number: CA-SANDOZ-SDZ2025CA000399

PATIENT
  Sex: Male

DRUGS (1)
  1. HYRIMOZ [Suspect]
     Active Substance: ADALIMUMAB-ADAZ
     Indication: Crohn^s disease
     Dosage: 40MG SC QSEMAINE;WEEKLY
     Route: 058
     Dates: start: 20220411

REACTIONS (3)
  - Hospitalisation [Unknown]
  - Lymphoma [Unknown]
  - Off label use [Unknown]
